FAERS Safety Report 9324740 (Version 1)
Quarter: 2013Q2

REPORT INFORMATION
  Report Type: Spontaneous
  Country: US (occurrence: None)
  Receive Date: 20130529
  Receipt Date: 20130529
  Transmission Date: 20140414
  Serious: Yes (Hospitalization)
  Sender: FDA-Public Use
  Company Number: JPI-P-032166

PATIENT
  Age: 26 Year
  Sex: Male

DRUGS (1)
  1. XYREM [Suspect]
     Indication: NARCOLEPSY
     Dosage: TWO NIGHTLY DOSES OF 2.25 GM.
     Route: 048
     Dates: start: 20121011

REACTIONS (4)
  - Nightmare [None]
  - Depressed level of consciousness [None]
  - Lacrimation increased [None]
  - Speech disorder [None]
